FAERS Safety Report 4774371-0 (Version None)
Quarter: 2005Q3

REPORT INFORMATION
  Report Type: 
  Country: None (occurrence: None)
  Receive Date: 20050914
  Receipt Date: 20050402
  Transmission Date: 20060218
  Serious: Yes (Hospitalization)
  Sender: FDA-Public Use
  Company Number: 163-20785-05040052

PATIENT
  Age: 69 Year
  Sex: Female
  Weight: 61.4 kg

DRUGS (3)
  1. THALOMID [Suspect]
     Indication: PANCREATIC CARCINOMA
     Dosage: 400 MG, DAILY, ORAL
     Route: 048
     Dates: start: 20050223, end: 20050306
  2. IRINOTECAN HCL [Suspect]
     Indication: PANCREATIC CARCINOMA
     Dosage: 350 MG/M2, OVER 90 MINUTES DAY 1, INTRAVENOUS; 300 MG/M2, OVER 90 MINUTES, DAY 22, INTRAVENOUS
     Route: 042
     Dates: start: 20050302, end: 20050302
  3. IRINOTECAN HCL [Suspect]
     Indication: PANCREATIC CARCINOMA
     Dosage: 350 MG/M2, OVER 90 MINUTES DAY 1, INTRAVENOUS; 300 MG/M2, OVER 90 MINUTES, DAY 22, INTRAVENOUS
     Route: 042
     Dates: start: 20050323, end: 20050323

REACTIONS (2)
  - FEBRILE NEUTROPENIA [None]
  - NEUTROPENIA [None]
